FAERS Safety Report 4512953-1 (Version None)
Quarter: 2004Q4

REPORT INFORMATION
  Report Type: 
  Country: None (occurrence: None)
  Receive Date: 20041124
  Receipt Date: 20041112
  Transmission Date: 20050328
  Serious: Yes (Hospitalization)
  Sender: FDA-Public Use
  Company Number: 2004091855

PATIENT
  Age: 46 Year
  Sex: Male
  Weight: 90.7194 kg

DRUGS (1)
  1. BENADRYL (DIPHENHYDRAMINE) [Suspect]
     Indication: HYPERSENSITIVITY
     Dosage: TWO ULTRATABS Q.D., ORAL
     Route: 048
     Dates: end: 20041111

REACTIONS (2)
  - CHOLELITHIASIS [None]
  - SOMNOLENCE [None]
